FAERS Safety Report 6437291-1 (Version None)
Quarter: 2009Q4

REPORT INFORMATION
  Report Type: 
  Country: None (occurrence: None)
  Receive Date: 20091112
  Receipt Date: 20091110
  Transmission Date: 20100525
  Serious: Yes (Other)
  Sender: FDA-Public Use
  Company Number: CH-BRISTOL-MYERS SQUIBB COMPANY-14845606

PATIENT
  Age: 54 Year
  Sex: Female

DRUGS (3)
  1. ORENCIA [Suspect]
     Indication: POLYARTHRITIS
     Dosage: LAST INF ON 04NOV09
     Route: 042
     Dates: start: 20080701
  2. METHOTREXATE [Suspect]
     Dosage: DOSE INCREASED TO 20MG ON 12AUG09
     Dates: start: 20090716
  3. PREDNISONE [Concomitant]

REACTIONS (2)
  - HAEMOGLOBIN DECREASED [None]
  - LEUKOPENIA [None]
